FAERS Safety Report 3839792 (Version 3)
Quarter: 2012Q4

REPORT INFORMATION
  Report Type: Report from Study
  Country: CH (occurrence: US)
  Receive Date: 20020918
  Receipt Date: 20121128
  Transmission Date: 20130627
  Serious: Yes (Other)
  Sender: FDA-Public Use
  Company Number: US-BRISTOL-MYERS SQUIBB COMPANY-12035572

PATIENT
  Age: 1 Day
  Sex: Female
  Weight: 2.5 kg

DRUGS (5)
  1. SUSTIVA [Suspect]
     Dosage: ongoing at conception
     Route: 064
     Dates: end: 20020114
  2. COMBIVIR [Suspect]
     Dosage: ongoing at the time of conception
     Route: 064
     Dates: end: 20020215
  3. TRIZIVIR [Suspect]
     Route: 064
     Dates: start: 20020218, end: 20020710
  4. TENOFOVIR [Suspect]
     Route: 064
     Dates: start: 20020218, end: 20020710
  5. RETROVIR [Suspect]
     Route: 064
     Dates: start: 20020710, end: 20020710

REACTIONS (1)
  - Cleft palate [Unknown]
